FAERS Safety Report 4330816-1 (Version None)
Quarter: 2004Q1

REPORT INFORMATION
  Report Type: 
  Country: None (occurrence: None)
  Receive Date: 20040331
  Receipt Date: 20040315
  Transmission Date: 20041129
  Serious: Yes (Other)
  Sender: FDA-Public Use
  Company Number: US_0403101586

PATIENT
  Age: 81 Year
  Sex: Male
  Weight: 110 kg

DRUGS (15)
  1. PEMETREXED [Suspect]
     Indication: NON-SMALL CELL LUNG CANCER
     Dosage: 500 MG/M2
     Dates: start: 20031027
  2. GEMCITABINE HYDROCHLORIDE-IV (GEMCITABINE) [Suspect]
     Indication: NON-SMALL CELL LUNG CANCER
     Dosage: 1250MG/M2
     Dates: start: 20031020
  3. ALLOPURINOL [Concomitant]
  4. MINIPRESS [Concomitant]
  5. DARVOCET-N 100 [Concomitant]
  6. FOLIC ACID [Concomitant]
  7. TYLENOL PM [Concomitant]
  8. CLARITIN [Concomitant]
  9. MVI (MVI) [Concomitant]
  10. PERI-COLACE [Concomitant]
  11. LOTRISONE [Concomitant]
  12. ZANTAC [Concomitant]
  13. HYDROCHLOROTHIAZIDE [Concomitant]
  14. DEXAMETHASONE [Concomitant]
  15. ANZEMET (DOLASETRON MESILATE) [Concomitant]

REACTIONS (14)
  - AORTIC VALVE INCOMPETENCE [None]
  - ATRIAL FIBRILLATION [None]
  - BLOOD POTASSIUM DECREASED [None]
  - BUNDLE BRANCH BLOCK LEFT [None]
  - CARDIAC FAILURE CONGESTIVE [None]
  - CARDIOMYOPATHY [None]
  - MITRAL VALVE INCOMPETENCE [None]
  - PERICARDIAL EFFUSION [None]
  - PLEURAL EFFUSION [None]
  - PULMONARY ARTERIAL PRESSURE INCREASED [None]
  - PULMONARY VALVE INCOMPETENCE [None]
  - TRICUSPID VALVE INCOMPETENCE [None]
  - VENTRICULAR HYPERTROPHY [None]
  - VENTRICULAR HYPOKINESIA [None]
